FAERS Safety Report 12836995 (Version 1)
Quarter: 2016Q4

REPORT INFORMATION
  Report Type: Spontaneous
  Country: US (occurrence: US)
  Receive Date: 20161011
  Receipt Date: 20161011
  Transmission Date: 20170207
  Serious: Yes (Hospitalization, Other)
  Sender: FDA-Public Use
  Company Number: US-BAYER-2016-191455

PATIENT
  Age: 74 Year
  Sex: Female
  Weight: 99.7 kg

DRUGS (21)
  1. LISINOPRIL. [Concomitant]
     Active Substance: LISINOPRIL
  2. CORGARD [Concomitant]
     Active Substance: NADOLOL
  3. GLUCOTROL [Concomitant]
     Active Substance: GLIPIZIDE
  4. GLUCOSAMINE [Concomitant]
     Active Substance: GLUCOSAMINE
  5. ROBITUSSIN AC [CODEINE PHOSPHATE,GUAIFENESIN] [Concomitant]
  6. ZANTAC [Concomitant]
     Active Substance: RANITIDINE HYDROCHLORIDE
  7. CINNAMOMUM VERUM BARK [Concomitant]
     Active Substance: CINNAMON
  8. NORVASC [Concomitant]
     Active Substance: AMLODIPINE BESYLATE
  9. CYANOCOBALAMIN. [Concomitant]
     Active Substance: CYANOCOBALAMIN
  10. BAYER LOW DOSE [Suspect]
     Active Substance: ASPIRIN
     Indication: PROPHYLAXIS
     Dosage: 81 MG, QD
     Route: 048
     Dates: start: 20150108, end: 20160826
  11. IBUPROFEN. [Suspect]
     Active Substance: IBUPROFEN
     Indication: PAIN
     Dosage: 400 MG, QID
     Route: 048
     Dates: start: 20150622, end: 20160826
  12. WELLBUTRIN SR [Concomitant]
     Active Substance: BUPROPION HYDROCHLORIDE
  13. COZAAR [Concomitant]
     Active Substance: LOSARTAN POTASSIUM
  14. GLUCOPHAGE [Concomitant]
     Active Substance: METFORMIN HYDROCHLORIDE
  15. COMPAZINE [Concomitant]
     Active Substance: PROCHLORPERAZINE MALEATE
  16. TRIAMCINOLONE ACETONIDE. [Concomitant]
     Active Substance: TRIAMCINOLONE ACETONIDE
  17. LIPITOR [Concomitant]
     Active Substance: ATORVASTATIN CALCIUM
  18. LETROZOLE. [Concomitant]
     Active Substance: LETROZOLE
  19. PALBOCICLIB [Suspect]
     Active Substance: PALBOCICLIB
     Indication: BREAST CANCER
     Dosage: 75 MG, QD FOR 21 DAYS THEN 7 DAY OFF BEFORE BEGIN NEXT CYCLE
     Route: 048
     Dates: start: 20150606, end: 20160821
  20. FLONASE [Concomitant]
     Active Substance: FLUTICASONE PROPIONATE
  21. ACTOS [Concomitant]
     Active Substance: PIOGLITAZONE HYDROCHLORIDE

REACTIONS (15)
  - Gastric ulcer [Recovering/Resolving]
  - Vomiting [Recovering/Resolving]
  - Rectal haemorrhage [None]
  - Abdominal discomfort [Recovering/Resolving]
  - Dizziness [Recovering/Resolving]
  - Anaemia [None]
  - Nausea [Recovering/Resolving]
  - Abdominal pain [Recovering/Resolving]
  - Diarrhoea [Recovering/Resolving]
  - White blood cells urine positive [None]
  - Colitis ischaemic [Recovering/Resolving]
  - Rectal haemorrhage [Recovering/Resolving]
  - Gastroduodenal ulcer [Recovering/Resolving]
  - Gastrooesophageal reflux disease [None]
  - Haemoglobin decreased [None]

NARRATIVE: CASE EVENT DATE: 201608
